FAERS Safety Report 5207125-1 (Version None)
Quarter: 2007Q1

REPORT INFORMATION
  Report Type: 
  Country: None (occurrence: None)
  Receive Date: 20070110
  Receipt Date: 20061230
  Transmission Date: 20070707
  Serious: Yes (Other)
  Sender: FDA-Public Use
  Company Number: 2007SP000087

PATIENT
  Age: 53 Year
  Sex: Male

DRUGS (2)
  1. PEG-INTRON [Suspect]
     Indication: HEPATITIS C
     Dates: start: 20060715
  2. RIBAVIRIN [Suspect]
     Indication: HEPATITIS C
     Dosage: PO
     Route: 048
     Dates: start: 20060715

REACTIONS (5)
  - DEHYDRATION [None]
  - GAIT DISTURBANCE [None]
  - HEMIPARESIS [None]
  - MALAISE [None]
  - SENSATION OF HEAVINESS [None]
